FAERS Safety Report 9411249 (Version 1)
Quarter: 2013Q3

REPORT INFORMATION
  Report Type: Spontaneous
  Country: US (occurrence: US)
  Receive Date: 20130722
  Receipt Date: 20130722
  Transmission Date: 20140515
  Serious: No
  Sender: FDA-Public Use
  Company Number: US-B.I. PHARMACEUTICALS,INC./RIDGEFIELD-2013-BI-20985BP

PATIENT
  Age: 52 Year
  Sex: Female

DRUGS (8)
  1. SPIRIVA [Suspect]
     Indication: CHRONIC OBSTRUCTIVE PULMONARY DISEASE
     Dosage: 18 MCG
     Route: 055
     Dates: start: 2011
  2. DULARA [Concomitant]
     Route: 055
  3. PROVENTIL [Concomitant]
     Route: 055
  4. ZOLOFT [Concomitant]
     Dosage: 100 MG
     Route: 048
  5. NEURONTIN [Concomitant]
     Dosage: 2400 ANZ
     Route: 048
  6. ALBUTEROL NEBULIZER [Concomitant]
     Route: 055
  7. LIPITOR [Concomitant]
     Route: 048
  8. CLARINEX [Concomitant]
     Route: 048

REACTIONS (2)
  - Anxiety [Recovered/Resolved]
  - Gastric pH decreased [Recovered/Resolved]
